FAERS Safety Report 5413012-6 (Version None)
Quarter: 2007Q3

REPORT INFORMATION
  Report Type: 
  Country: None (occurrence: None)
  Receive Date: 20070813
  Receipt Date: 20070802
  Transmission Date: 20080115
  Serious: Yes (Other)
  Sender: FDA-Public Use
  Company Number: GB-PFIZER INC-2007064676

PATIENT
  Age: 70 Year
  Sex: Female

DRUGS (10)
  1. METHYLPREDNISOLONE 16MG TAB [Suspect]
     Indication: T-CELL LYMPHOMA STAGE IV
  2. METHYLPREDNISOLONE 16MG TAB [Suspect]
  3. CISPLATIN [Suspect]
     Indication: T-CELL LYMPHOMA STAGE IV
  4. GEMCITABINE HCL [Suspect]
     Indication: T-CELL LYMPHOMA STAGE IV
  5. BLEOMYCIN [Concomitant]
  6. CYCLOPHOSPHAMIDE [Concomitant]
  7. ETOPOSIDE [Concomitant]
  8. METHOTREXATE [Concomitant]
  9. PREDNISOLONE [Concomitant]
  10. VINCRISTINE [Concomitant]

REACTIONS (1)
  - NEUTROPENIA [None]
